FAERS Safety Report 13857960 (Version 3)
Quarter: 2024Q4

REPORT INFORMATION
  Report Type: Spontaneous
  Country: US (occurrence: US)
  Receive Date: 20170811
  Receipt Date: 20241122
  Transmission Date: 20250115
  Serious: Yes (Other)
  Sender: ALKEM
  Company Number: None

PATIENT
  Age: 46 Year
  Sex: Female

DRUGS (23)
  1. MYCOPHENOLATE MOFETIL [Suspect]
     Active Substance: MYCOPHENOLATE MOFETIL
     Indication: Systemic lupus erythematosus
     Dosage: 500 MILLIGRAM, BID
     Route: 048
  2. MYCOPHENOLATE MOFETIL [Suspect]
     Active Substance: MYCOPHENOLATE MOFETIL
     Dosage: UNK (PAST DRUG)
     Route: 065
  3. MYCOPHENOLATE MOFETIL [Suspect]
     Active Substance: MYCOPHENOLATE MOFETIL
     Dosage: UNK (INCREMENTAL DOSES FOR EVERY 20 MINUTE)
     Route: 065
  4. MYCOPHENOLATE MOFETIL [Suspect]
     Active Substance: MYCOPHENOLATE MOFETIL
     Dosage: 0.25 MILLIGRAM (AT 0 HOURS AND MINUTE, VOLUME (200 MILLIGRAM PER MILLILITER) WAS 0.00125)
     Route: 048
  5. MYCOPHENOLATE MOFETIL [Suspect]
     Active Substance: MYCOPHENOLATE MOFETIL
     Dosage: 0.5 MILLIGRAM (AT 0 HOUR AND 20 MINUTE, VOLUME (200 MILLIGRAM PER MILLILITER) WAS 0.0025)
     Route: 048
  6. MYCOPHENOLATE MOFETIL [Suspect]
     Active Substance: MYCOPHENOLATE MOFETIL
     Dosage: 1 MILLIGRAM (AT 0 HOUR AND 40 MINUTE, VOLUME (200 MILLIGRAM PER MILLILITER) WAS 0.005)
     Route: 048
  7. MYCOPHENOLATE MOFETIL [Suspect]
     Active Substance: MYCOPHENOLATE MOFETIL
     Dosage: 2 MILLIGRAM (AT 1 HOUR AND 0 MINUTE, VOLUME (200 MILLIGRAM PER MILLILITER) WAS 0.01)
     Route: 048
  8. MYCOPHENOLATE MOFETIL [Suspect]
     Active Substance: MYCOPHENOLATE MOFETIL
     Dosage: 4 MILLIGRAM (AT 1 HOUR AND 20 MINUTE, VOLUME (200 MILLIGRAM PER MILLILITER) WAS 0.02)
     Route: 048
  9. MYCOPHENOLATE MOFETIL [Suspect]
     Active Substance: MYCOPHENOLATE MOFETIL
     Dosage: 5 MILLIGRAM (AT 1 HOUR AND 40 MINUTE, VOLUME (200 MILLIGRAM PER MILLILITER) WAS 0.025)
     Route: 048
  10. MYCOPHENOLATE MOFETIL [Suspect]
     Active Substance: MYCOPHENOLATE MOFETIL
     Dosage: 16 MILLIGRAM (AT 2 HOUR AND 0 MINUTE, VOLUME (200 MILLIGRAM PER MILLILITER) WAS 0.08)
     Route: 048
  11. MYCOPHENOLATE MOFETIL [Suspect]
     Active Substance: MYCOPHENOLATE MOFETIL
     Dosage: 32 MILLIGRAM (AT 2 HOUR AND 20 MINUTE, VOLUME (200 MILLIGRAM PER MILLILITER) WAS 0.16)
     Route: 048
  12. MYCOPHENOLATE MOFETIL [Suspect]
     Active Substance: MYCOPHENOLATE MOFETIL
     Dosage: 64 MILLIGRAM (AT 2 HOUR AND 40 MINUTE, VOLUME (200 MILLIGRAM PER MILLILITER) WAS 0.32)
     Route: 048
  13. MYCOPHENOLATE MOFETIL [Suspect]
     Active Substance: MYCOPHENOLATE MOFETIL
     Dosage: 125 MILLIGRAM (AT 3 HOUR AND 00 MINUTE, VOLUME (200 MILLIGRAM PER MILLILITER) WAS 0.625)
     Route: 048
  14. MYCOPHENOLATE MOFETIL [Suspect]
     Active Substance: MYCOPHENOLATE MOFETIL
     Dosage: 250 MILLIGRAM (AT 3 HOUR AND 20 MINUTE, VOLUME (200 MILLIGRAM PER MILLILITER) WAS 1.25)
     Route: 048
  15. MYCOPHENOLATE MOFETIL [Suspect]
     Active Substance: MYCOPHENOLATE MOFETIL
     Dosage: 500 MILLIGRAM (AT 3 HOUR AND 40 MINUTE, VOLUME (200 MILLIGRAM PER MILLILITER) WAS 2.5)
     Route: 048
  16. MYCOPHENOLATE MOFETIL [Suspect]
     Active Substance: MYCOPHENOLATE MOFETIL
     Dosage: 999.75 MILLIGRAM (AT 3 HOUR AND 40 MINUTE, VOLUME (200 MILLIGRAM PER MILLILITER) WAS 4.99875)
     Route: 048
  17. AZATHIOPRINE [Concomitant]
     Active Substance: AZATHIOPRINE
     Indication: Product used for unknown indication
     Dosage: UNK
     Route: 065
  18. CYCLOPHOSPHAMIDE [Concomitant]
     Active Substance: CYCLOPHOSPHAMIDE
     Indication: Systemic lupus erythematosus
     Dosage: UNK
     Route: 065
  19. DIPHENHYDRAMINE [Concomitant]
     Active Substance: DIPHENHYDRAMINE
     Indication: Product used for unknown indication
     Dosage: 25 MILLIGRAM
     Route: 042
  20. FAMOTIDINE [Concomitant]
     Active Substance: FAMOTIDINE
     Indication: Product used for unknown indication
     Dosage: 20 MILLIGRAM
     Route: 042
  21. METHYLPREDNISOLONE [Concomitant]
     Active Substance: METHYLPREDNISOLONE
     Indication: Product used for unknown indication
     Dosage: UNK
     Route: 065
  22. PREDNISONE [Concomitant]
     Active Substance: PREDNISONE
     Indication: Systemic lupus erythematosus
     Dosage: UNK
     Route: 065
  23. TACROLIMUS [Concomitant]
     Active Substance: TACROLIMUS
     Indication: Product used for unknown indication
     Dosage: UNK
     Route: 065

REACTIONS (4)
  - Angioedema [Recovered/Resolved]
  - Leukopenia [Unknown]
  - Lip pruritus [Recovered/Resolved]
  - Urticaria [Recovered/Resolved]
